FAERS Safety Report 10362578 (Version 1)
Quarter: 2014Q3

REPORT INFORMATION
  Report Type: Spontaneous
  Country: JP (occurrence: None)
  Receive Date: 20140728
  Receipt Date: 20140728
  Transmission Date: 20150326
  Serious: Yes (Other)
  Sender: FDA-Public Use
  Company Number: 2014-19823

PATIENT
  Age: 72 Year
  Sex: Male

DRUGS (10)
  1. DEPAS (EZETIZOLAM) [Concomitant]
  2. METFORMIN HYDROCHLORIDE (METFORMIN HYDROCHLORIDE) [Concomitant]
     Active Substance: METFORMIN HYDROCHLORIDE
  3. PYDOXAL (PYRIDOXAL PHOSPHATE) [Concomitant]
  4. JANUIVIA (SITAGLIPTIN  PHOSPHATE) [Concomitant]
  5. RIFADIN (RIFAMPICIN) [Concomitant]
  6. EYLEA [Suspect]
     Active Substance: AFLIBERCEPT
     Indication: AGE-RELATED MACULAR DEGENERATION
     Route: 031
     Dates: start: 20140617, end: 20140617
  7. KLARACID (CLARITHROMYCIN) [Concomitant]
  8. AMARYL [Concomitant]
     Active Substance: GLIMEPIRIDE
  9. ISCOTIN (ISONIAZID) [Concomitant]
  10. GOODMIN (BORTIZOLAM) [Concomitant]

REACTIONS (1)
  - Blood pressure increased [None]

NARRATIVE: CASE EVENT DATE: 20140617
